FAERS Safety Report 23193706 (Version 3)
Quarter: 2023Q4

REPORT INFORMATION
  Report Type: Spontaneous
  Country: JP (occurrence: JP)
  Receive Date: 20231116
  Receipt Date: 20231210
  Transmission Date: 20240110
  Serious: Yes (Death, Hospitalization, Other)
  Sender: FDA-Public Use
  Company Number: JP-SAKK-2023SA353608AA

PATIENT
  Age: 51 Year
  Sex: Male
  Weight: 65.8 kg

DRUGS (10)
  1. TAXOTERE [Suspect]
     Active Substance: DOCETAXEL
     Indication: Non-small cell lung cancer
     Dosage: 110.6 MG, Q3W
     Route: 041
     Dates: start: 20231018
  2. ELIQUIS [Concomitant]
     Active Substance: APIXABAN
     Indication: Pulmonary artery thrombosis
     Dosage: 10 MG, QD
     Route: 065
     Dates: start: 20230217
  3. ELIQUIS [Concomitant]
     Active Substance: APIXABAN
     Indication: Deep vein thrombosis
  4. LOXOPROFEN SODIUM DIHYDRATE [Concomitant]
     Active Substance: LOXOPROFEN SODIUM DIHYDRATE
     Indication: Cancer pain
     Dosage: 60 MG, TID
     Route: 065
     Dates: start: 20230331
  5. REBAMIPIDE [Concomitant]
     Active Substance: REBAMIPIDE
     Indication: Gastritis prophylaxis
     Dosage: 100 MG, TID
     Route: 065
     Dates: start: 20230331
  6. RABEPRAZOLE SODIUM [Concomitant]
     Active Substance: RABEPRAZOLE SODIUM
     Indication: Gastritis prophylaxis
     Dosage: 10 MG, QD
     Route: 065
     Dates: start: 20230422
  7. AMBROXOL HYDROCHLORIDE [Concomitant]
     Active Substance: AMBROXOL HYDROCHLORIDE
     Indication: Non-small cell lung cancer
     Dosage: 15 MG, TID
     Route: 065
     Dates: start: 20230410
  8. SENNOSIDES A AND B [Concomitant]
     Active Substance: SENNOSIDES A AND B
     Indication: Constipation prophylaxis
     Dosage: 12 MG, PRN
     Route: 065
     Dates: start: 20231022
  9. DEXAMETHASONE [Concomitant]
     Active Substance: DEXAMETHASONE
     Indication: Chemotherapy side effect prophylaxis
     Dosage: 6.6 MG, Q3W
     Route: 065
     Dates: start: 20231018, end: 20231018
  10. GRANISETRON HYDROCHLORIDE [Concomitant]
     Active Substance: GRANISETRON HYDROCHLORIDE
     Indication: Chemotherapy side effect prophylaxis
     Dosage: 1 MG, Q3W
     Route: 065
     Dates: start: 20231018

REACTIONS (11)
  - Disease progression [Fatal]
  - Cardiac arrest [Fatal]
  - Respiratory distress [Fatal]
  - Febrile neutropenia [Recovered/Resolved]
  - Oropharyngeal pain [Recovered/Resolved]
  - Discomfort [Unknown]
  - SARS-CoV-2 test positive [Unknown]
  - Vomiting [Unknown]
  - Nausea [Unknown]
  - Dizziness [Unknown]
  - Hypotension [Unknown]

NARRATIVE: CASE EVENT DATE: 20231026
